FAERS Safety Report 17643529 (Version 1)
Quarter: 2020Q2

REPORT INFORMATION
  Report Type: Spontaneous
  Country: US (occurrence: US)
  Receive Date: 20200408
  Receipt Date: 20200408
  Transmission Date: 20200713
  Serious: No
  Sender: FDA-Public Use
  Company Number: US-ALLERGAN-2003254US

PATIENT
  Sex: Female

DRUGS (4)
  1. LILETTA [Suspect]
     Active Substance: LEVONORGESTREL
     Indication: MENSTRUAL DISORDER
  2. LILETTA [Suspect]
     Active Substance: LEVONORGESTREL
     Indication: UTERINE PAIN
  3. LILETTA [Suspect]
     Active Substance: LEVONORGESTREL
     Indication: ENDOMETRIOSIS
     Dosage: 52 MG, SINGLE
     Route: 015
     Dates: start: 20191212, end: 20200113
  4. LILETTA [Suspect]
     Active Substance: LEVONORGESTREL
     Indication: DYSMENORRHOEA

REACTIONS (3)
  - Uterine haemorrhage [Unknown]
  - Pain [Unknown]
  - Off label use [Unknown]
